FAERS Safety Report 17538873 (Version 1)
Quarter: 2020Q1

REPORT INFORMATION
  Report Type: Spontaneous
  Country: US (occurrence: US)
  Receive Date: 20200306
  Receipt Date: 20200306
  Transmission Date: 20200409
  Serious: Yes (Hospitalization)
  Sender: FDA-Public Use
  Company Number: None

PATIENT
  Age: 60 Year
  Sex: Female

DRUGS (17)
  1. CYMBALTA [Concomitant]
     Active Substance: DULOXETINE HYDROCHLORIDE
  2. CYCLOBENZAPR [Concomitant]
     Active Substance: CYCLOBENZAPRINE
  3. DULOXETINE. [Concomitant]
     Active Substance: DULOXETINE
  4. ESTRADIOL. [Concomitant]
     Active Substance: ESTRADIOL
  5. FUROSEMIDE. [Concomitant]
     Active Substance: FUROSEMIDE
  6. RANITIDINE. [Concomitant]
     Active Substance: RANITIDINE
  7. ZOLPIDEM [Concomitant]
     Active Substance: ZOLPIDEM TARTRATE
  8. AMITIZA [Concomitant]
     Active Substance: LUBIPROSTONE
  9. ROPINIROLE. [Concomitant]
     Active Substance: ROPINIROLE
  10. PREGABALIN. [Concomitant]
     Active Substance: PREGABALIN
  11. DICYCLOMINE [Concomitant]
     Active Substance: DICYCLOMINE HYDROCHLORIDE
  12. PILOCARPINE. [Concomitant]
     Active Substance: PILOCARPINE
  13. TOPIRAMATE. [Concomitant]
     Active Substance: TOPIRAMATE
  14. CLONAZEP ODT [Concomitant]
  15. PANTOPRAZOLE [Concomitant]
     Active Substance: PANTOPRAZOLE
  16. BOTOX [Suspect]
     Active Substance: ONABOTULINUMTOXINA
     Indication: MIGRAINE WITH AURA
     Dosage: ?          OTHER FREQUENCY:EVERY 12 WEEK;?
     Route: 030
     Dates: start: 201906
  17. CELECOXIB. [Concomitant]
     Active Substance: CELECOXIB

REACTIONS (1)
  - Headache [None]

NARRATIVE: CASE EVENT DATE: 20200304
